FAERS Safety Report 7527985-9 (Version None)
Quarter: 2011Q2

REPORT INFORMATION
  Report Type: 
  Country: None (occurrence: None)
  Receive Date: 20110607
  Receipt Date: 20040121
  Transmission Date: 20111010
  Serious: Yes (Death, Hospitalization)
  Sender: FDA-Public Use
  Company Number: PHNR2004AU00488

PATIENT
  Sex: Male

DRUGS (5)
  1. CLOZARIL [Suspect]
     Dosage: 550 MG, QD
     Dates: start: 19960705
  2. PAROXETINE [Concomitant]
     Dosage: 20 MG, MANE
  3. CAPADEX [Concomitant]
     Dosage: 1 UNK, UNK
  4. AMITRIPTYLINE HCL [Concomitant]
     Dosage: 25 MG, NOCTE
  5. VALPROATE SODIUM [Concomitant]
     Dosage: 500 MG, BID
     Dates: end: 20031119

REACTIONS (3)
  - INTESTINAL ISCHAEMIA [None]
  - ABDOMINAL DISTENSION [None]
  - GASTROINTESTINAL CARCINOMA [None]
